FAERS Safety Report 6322797-6 (Version None)
Quarter: 2009Q3

REPORT INFORMATION
  Report Type: 
  Country: None (occurrence: None)
  Receive Date: 20090824
  Receipt Date: 20090304
  Transmission Date: 20100115
  Serious: No
  Sender: FDA-Public Use
  Company Number: US-ABBOTT-09P-163-0561107-00

PATIENT
  Sex: Female

DRUGS (2)
  1. NIASPAN [Suspect]
     Indication: BLOOD CHOLESTEROL INCREASED
     Dates: start: 20080701
  2. ZETIA [Suspect]
     Indication: BLOOD CHOLESTEROL INCREASED
     Dates: start: 20080701, end: 20080901

REACTIONS (1)
  - MYALGIA [None]
